FAERS Safety Report 14019086 (Version 2)
Quarter: 2017Q4

REPORT INFORMATION
  Report Type: Spontaneous
  Country: JP (occurrence: JP)
  Receive Date: 20170928
  Receipt Date: 20171003
  Transmission Date: 20180321
  Serious: Yes (Other)
  Sender: FDA-Public Use
  Company Number: PHJP2017JP029037

PATIENT
  Age: 45 Year
  Sex: Female

DRUGS (2)
  1. IMUSERA [Suspect]
     Active Substance: FINGOLIMOD HYDROCHLORIDE
     Dosage: DAYS OF A WEEK (W) 3-5/W
     Route: 048
  2. IMUSERA [Suspect]
     Active Substance: FINGOLIMOD HYDROCHLORIDE
     Indication: MULTIPLE SCLEROSIS
     Dosage: DAYS OF A WEEK (W) FROM 7/W
     Route: 048

REACTIONS (3)
  - JC virus test positive [Unknown]
  - Prescribed underdose [Unknown]
  - Lymphopenia [Unknown]
